FAERS Safety Report 8531248 (Version 5)
Quarter: 2013Q1

REPORT INFORMATION
  Report Type: Spontaneous
  Country: CA (occurrence: CA)
  Receive Date: 20120426
  Receipt Date: 20130109
  Transmission Date: 20140127
  Serious: Yes (Hospitalization, Other)
  Sender: FDA-Public Use
  Company Number: PHHY2012CA033867

PATIENT
  Sex: Male

DRUGS (9)
  1. DESFERAL [Suspect]
     Indication: HEREDITARY HAEMOCHROMATOSIS
     Dosage: UNK UKN, UNK
     Route: 042
  2. NADOLOL [Concomitant]
     Dosage: UNK UKN, UNK
  3. SPIRONOLACTONE [Concomitant]
     Dosage: UNK UKN, UNK
  4. SYNTHROID [Concomitant]
     Dosage: UNK UKN, UNK
  5. TESTOSTERONE [Concomitant]
     Dosage: UNK UKN, UNK
  6. NYSTATIN [Concomitant]
     Dosage: UNK UKN, UNK
  7. INSULIN [Concomitant]
     Dosage: UNK UKN, UNK
  8. RAMIPRIL [Concomitant]
     Dosage: UNK UKN, UNK
  9. ESOMEPRAZOLE [Concomitant]
     Dosage: UNK UKN, UNK

REACTIONS (4)
  - Peritonitis [Unknown]
  - Pulmonary toxicity [Unknown]
  - Deafness [Unknown]
  - Agranulocytosis [Unknown]
